FAERS Safety Report 8586847-9 (Version None)
Quarter: 2012Q3

REPORT INFORMATION
  Report Type: 
  Country: None (occurrence: None)
  Receive Date: 20120810
  Receipt Date: 20120730
  Transmission Date: 20120928
  Serious: Yes (Other)
  Sender: FDA-Public Use
  Company Number: JP-UCBSA-059290

PATIENT
  Age: 17 Year
  Sex: Female

DRUGS (22)
  1. VALPROATE SODIUM [Concomitant]
     Indication: MYOCLONIC EPILEPSY
     Dosage: DAILY DOSE: 1400 MG
     Route: 048
     Dates: start: 20110511
  2. KEPPRA [Suspect]
     Indication: GRAND MAL CONVULSION
     Route: 048
     Dates: start: 20111228, end: 20120113
  3. VALPROATE SODIUM [Concomitant]
     Dosage: DAILY DOSE: 1300 MG
     Route: 048
     Dates: start: 20110506, end: 20110510
  4. VALPROATE SODIUM [Concomitant]
     Dosage: DAILY DOSE: 1200 MG
     Route: 048
     Dates: start: 20110427, end: 20110505
  5. VALPROATE SODIUM [Concomitant]
     Dosage: DAILY DOSE: 1000 MG
     Route: 048
     Dates: start: 20110406, end: 20110426
  6. CLOBAZAM [Concomitant]
     Dosage: DAILY DOSE:10 MG
     Route: 048
     Dates: start: 20120121, end: 20120217
  7. CLOBAZAM [Concomitant]
     Dosage: DAILY DOSE:20 MG
     Route: 048
     Dates: start: 20120303
  8. VALPROATE SODIUM [Concomitant]
     Indication: GRAND MAL CONVULSION
     Dosage: DAILY DOSE: 1400 MG
     Route: 048
     Dates: start: 20110511
  9. VALPROATE SODIUM [Concomitant]
     Dosage: DAILY DOSE: 1000 MG
     Route: 048
     Dates: start: 20110406, end: 20110426
  10. VALPROATE SODIUM [Concomitant]
     Route: 048
     Dates: start: 20070601, end: 20110405
  11. CLOBAZAM [Concomitant]
     Indication: MYOCLONIC EPILEPSY
     Dosage: DAILY DOSE: 5 MG
     Route: 048
     Dates: start: 20120114, end: 20120120
  12. KEPPRA [Suspect]
     Route: 048
     Dates: start: 20111207, end: 20111227
  13. VALPROATE SODIUM [Concomitant]
     Dosage: DAILY DOSE: 1300 MG
     Route: 048
     Dates: start: 20110506, end: 20110510
  14. CLOBAZAM [Concomitant]
     Dosage: DAILY DOSE:15 MG
     Route: 048
     Dates: start: 20120218, end: 20120302
  15. KEPPRA [Suspect]
     Indication: MYOCLONIC EPILEPSY
     Route: 048
     Dates: start: 20111228, end: 20120113
  16. KEPPRA [Suspect]
     Route: 048
     Dates: start: 20111207, end: 20111227
  17. VALPROATE SODIUM [Concomitant]
     Dosage: DAILY DOSE: 1200 MG
     Route: 048
     Dates: start: 20110427, end: 20110505
  18. CLOBAZAM [Concomitant]
     Indication: GRAND MAL CONVULSION
     Dosage: DAILY DOSE: 5 MG
     Route: 048
     Dates: start: 20120114, end: 20120120
  19. CLOBAZAM [Concomitant]
     Dosage: DAILY DOSE:10 MG
     Route: 048
     Dates: start: 20120121, end: 20120217
  20. CLOBAZAM [Concomitant]
     Dosage: DAILY DOSE:15 MG
     Route: 048
     Dates: start: 20120218, end: 20120302
  21. CLOBAZAM [Concomitant]
     Dosage: DAILY DOSE:20 MG
     Route: 048
     Dates: start: 20120303
  22. VALPROATE SODIUM [Concomitant]
     Route: 048
     Dates: start: 20070601, end: 20110405

REACTIONS (1)
  - EPILEPSY [None]
